FAERS Safety Report 4636151-6 (Version None)
Quarter: 2005Q2

REPORT INFORMATION
  Report Type: 
  Country: None (occurrence: None)
  Receive Date: 20050415
  Receipt Date: 20050406
  Transmission Date: 20051028
  Serious: Yes (Other)
  Sender: FDA-Public Use
  Company Number: GB-BRISTOL-MYERS SQUIBB COMPANY-12929469

PATIENT
  Age: 57 Year
  Sex: Female

DRUGS (2)
  1. TAXOL [Suspect]
     Indication: OVARIAN CANCER
     Route: 042
  2. PARAPLATIN [Suspect]
     Indication: OVARIAN CANCER
     Route: 042

REACTIONS (3)
  - MACULAR OEDEMA [None]
  - VISUAL ACUITY REDUCED [None]
  - VISUAL DISTURBANCE [None]
